FAERS Safety Report 5309069-3 (Version None)
Quarter: 2007Q2

REPORT INFORMATION
  Report Type: 
  Country: None (occurrence: None)
  Receive Date: 20070420
  Receipt Date: 20070405
  Transmission Date: 20071010
  Serious: Yes (Other)
  Sender: FDA-Public Use
  Company Number: 151209ISR

PATIENT
  Age: 28 Year
  Sex: Female

DRUGS (2)
  1. IBUPROFEN [Suspect]
     Dosage: ORAL
     Route: 048
  2. PAROXETINE HYDROCHLORIDE [Suspect]
     Dates: start: 19970902, end: 20010101

REACTIONS (20)
  - ACCIDENT [None]
  - ANXIETY [None]
  - DEPRESSION [None]
  - DRUG INEFFECTIVE [None]
  - DRUG WITHDRAWAL SYNDROME [None]
  - DRY MOUTH [None]
  - ECONOMIC PROBLEM [None]
  - FEELING ABNORMAL [None]
  - HYPERHIDROSIS [None]
  - HYPOAESTHESIA [None]
  - INITIAL INSOMNIA [None]
  - OVERDOSE [None]
  - PARANOIA [None]
  - PARTNER STRESS [None]
  - PRURITUS [None]
  - REBOUND EFFECT [None]
  - STRESS [None]
  - SUICIDAL IDEATION [None]
  - SUICIDE ATTEMPT [None]
  - TREATMENT NONCOMPLIANCE [None]
